FAERS Safety Report 9933615 (Version 1)
Quarter: 2014Q1

REPORT INFORMATION
  Report Type: Spontaneous
  Country: GB (occurrence: None)
  Receive Date: 20140226
  Receipt Date: 20140226
  Transmission Date: 20141002
  Serious: Yes (Hospitalization)
  Sender: FDA-Public Use
  Company Number: IMP_07483_2014

PATIENT
  Sex: 0

DRUGS (2)
  1. OMEPRAZOLE [Suspect]
     Indication: PRODUCT USED FOR UNKNOWN INDICATION
     Dosage: DF
  2. BENDROFLUMETHIAZIDE [Concomitant]

REACTIONS (4)
  - Gastrointestinal disorder [None]
  - Hypomagnesaemia [None]
  - Blood calcium decreased [None]
  - Blood calcium increased [None]
